FAERS Safety Report 17432911 (Version 1)
Quarter: 2020Q1

REPORT INFORMATION
  Report Type: Other
  Country: FR (occurrence: FR)
  Receive Date: 20200219
  Receipt Date: 20200219
  Transmission Date: 20200409
  Serious: Yes (Hospitalization, Other)
  Sender: FDA-Public Use
  Company Number: FR-DEXPHARM-20200154

PATIENT
  Age: 49 Year
  Sex: Female

DRUGS (3)
  1. VENLAFAXINE [Suspect]
     Active Substance: VENLAFAXINE HYDROCHLORIDE
     Dosage: 150 MG DAILY
     Dates: start: 201505
  2. PITOLISANT [Interacting]
     Active Substance: PITOLISANT
     Dosage: 18 MG DAILY
     Dates: start: 201709
  3. METHYLPHENIDATE. [Interacting]
     Active Substance: METHYLPHENIDATE
     Dosage: 40 MG DAILY
     Dates: start: 201505

REACTIONS (2)
  - Drug interaction [Unknown]
  - Sleep disorder [Unknown]
